FAERS Safety Report 20850739 (Version 1)
Quarter: 2022Q2

REPORT INFORMATION
  Report Type: Spontaneous
  Country: IN (occurrence: IN)
  Receive Date: 20220519
  Receipt Date: 20220519
  Transmission Date: 20220721
  Serious: Yes (Death, Other)
  Sender: FDA-Public Use
  Company Number: IN-GILEAD-2022-0581483

PATIENT
  Age: 72 Year
  Sex: Female

DRUGS (1)
  1. AMPHOTERICIN B [Suspect]
     Active Substance: AMPHOTERICIN B
     Indication: Pulmonary mucormycosis
     Dosage: 3 MG/KG, ONCE DAILY (QD)
     Route: 042

REACTIONS (8)
  - Multiple organ dysfunction syndrome [Fatal]
  - Upper gastrointestinal haemorrhage [Fatal]
  - Renal tubular acidosis [Fatal]
  - Liver injury [Fatal]
  - Acute kidney injury [Unknown]
  - Acidosis hyperchloraemic [Unknown]
  - Pyrexia [Unknown]
  - Off label use [Recovered/Resolved]
